FAERS Safety Report 5316829-1 (Version None)
Quarter: 2007Q2

REPORT INFORMATION
  Report Type: 
  Country: None (occurrence: None)
  Receive Date: 20070501
  Receipt Date: 20070501
  Transmission Date: 20071010
  Serious: Yes (Death, Life-Threatening, Hospitalization)
  Sender: FDA-Public Use
  Company Number: None

PATIENT
  Age: 28 Year
  Sex: Male
  Weight: 86.3 kg

DRUGS (5)
  1. FLUDARABINE [Suspect]
     Indication: ACUTE LYMPHOCYTIC LEUKAEMIA
     Dosage: 70 MG QD IV
     Route: 042
     Dates: start: 20070208, end: 20070212
  2. FLUDARABINE [Suspect]
     Indication: CHEMOTHERAPY
     Dosage: 70 MG QD IV
     Route: 042
     Dates: start: 20070208, end: 20070212
  3. CYTOXAN [Suspect]
     Dosage: 2GM QD IV
     Route: 042
     Dates: start: 20070213, end: 20070214
  4. UMBILICAL CORD BLOOD [Suspect]
     Indication: ACUTE LYMPHOCYTIC LEUKAEMIA
     Dosage: 70MG QD IV
     Route: 042
     Dates: start: 20070208, end: 20070212
  5. UMBILICAL CORD BLOOD [Suspect]
     Indication: CHEMOTHERAPY
     Dosage: 70MG QD IV
     Route: 042
     Dates: start: 20070208, end: 20070212

REACTIONS (4)
  - COMPLICATIONS OF TRANSPLANT SURGERY [None]
  - DIALYSIS [None]
  - MULTI-ORGAN FAILURE [None]
  - TRANSPLANT [None]
